FAERS Safety Report 9307799 (Version 1)
Quarter: 2013Q2

REPORT INFORMATION
  Report Type: Spontaneous
  Country: JP (occurrence: JP)
  Receive Date: 20130524
  Receipt Date: 20130524
  Transmission Date: 20140414
  Serious: Yes (Other)
  Sender: FDA-Public Use
  Company Number: JP-PFIZER INC-2013159708

PATIENT
  Age: 90 Year
  Sex: Female

DRUGS (1)
  1. CELECOX [Suspect]
     Dosage: 200 MG DAILY
     Route: 048

REACTIONS (2)
  - Herpes zoster [Recovered/Resolved]
  - Post herpetic neuralgia [Not Recovered/Not Resolved]
